FAERS Safety Report 19036550 (Version 1)
Quarter: 2021Q1

REPORT INFORMATION
  Report Type: Spontaneous
  Country: US (occurrence: US)
  Receive Date: 20210320
  Receipt Date: 20210320
  Transmission Date: 20210420
  Serious: No
  Sender: FDA-Public Use
  Company Number: None

PATIENT
  Age: 44 Year
  Sex: Male

DRUGS (2)
  1. TOPCO FIBER THERAPY SUGAR FREE [Suspect]
     Active Substance: PSYLLIUM HUSK
     Indication: BOWEL MOVEMENT IRREGULARITY
     Route: 048
     Dates: start: 20210219, end: 20210320
  2. TOPCO FIBER THERAPY SUGAR FREE [Suspect]
     Active Substance: PSYLLIUM HUSK
     Indication: BLOOD CHOLESTEROL INCREASED
     Route: 048
     Dates: start: 20210219, end: 20210320

REACTIONS (1)
  - Product quality issue [None]

NARRATIVE: CASE EVENT DATE: 20210320
